FAERS Safety Report 17725000 (Version 1)
Quarter: 2020Q2

REPORT INFORMATION
  Report Type: Spontaneous
  Country: US (occurrence: US)
  Receive Date: 20200429
  Receipt Date: 20200429
  Transmission Date: 20200714
  Serious: No
  Sender: FDA-Public Use
  Company Number: None

PATIENT
  Sex: Male

DRUGS (2)
  1. SIMVASTATIN. [Suspect]
     Active Substance: SIMVASTATIN
  2. LOVASTATIN. [Suspect]
     Active Substance: LOVASTATIN

REACTIONS (2)
  - Abdominal pain upper [None]
  - Muscle spasms [None]
